FAERS Safety Report 8408135-3 (Version None)
Quarter: 2012Q2

REPORT INFORMATION
  Report Type: 
  Country: None (occurrence: None)
  Receive Date: 20120604
  Receipt Date: 20120530
  Transmission Date: 20120825
  Serious: Yes (Other)
  Sender: FDA-Public Use
  Company Number: US-BAYER-2011-072697

PATIENT
  Age: 34 Year
  Sex: Female
  Weight: 85.261 kg

DRUGS (3)
  1. PREVACID [Concomitant]
     Indication: ABDOMINAL PAIN UPPER
     Route: 048
  2. YAZ [Suspect]
     Dosage: UNK
     Dates: start: 20060101, end: 20070101
  3. ASPIRIN [Concomitant]
     Dosage: 81 MG, BID

REACTIONS (8)
  - THROMBOPHLEBITIS SUPERFICIAL [None]
  - PAIN [None]
  - FEAR [None]
  - MESENTERIC VEIN THROMBOSIS [None]
  - INJURY [None]
  - ANXIETY [None]
  - ANHEDONIA [None]
  - PSYCHOLOGICAL TRAUMA [None]
